FAERS Safety Report 4439594-9 (Version None)
Quarter: 2004Q3

REPORT INFORMATION
  Report Type: 
  Country: None (occurrence: None)
  Receive Date: 20040830
  Receipt Date: 20040818
  Transmission Date: 20050211
  Serious: Yes (Hospitalization)
  Sender: FDA-Public Use
  Company Number: 2004057845

PATIENT
  Sex: Male

DRUGS (1)
  1. LISTERINE (EUCALYPTOL, MENTHOL, METHYL SALICYLATE, THYMOL) [Suspect]
     Indication: DENTAL CARE
     Dosage: ORAL, TOPICAL
     Route: 061

REACTIONS (1)
  - CEREBROVASCULAR ACCIDENT [None]
